FAERS Safety Report 9237150 (Version 1)
Quarter: 2013Q2

REPORT INFORMATION
  Report Type: Report from Study
  Country: US (occurrence: US)
  Receive Date: 20130417
  Receipt Date: 20130417
  Transmission Date: 20140414
  Serious: Yes (Other)
  Sender: FDA-Public Use
  Company Number: US-ABBOTT-13P-163-1069671-00

PATIENT
  Age: 30 Year
  Sex: Male
  Weight: 118.04 kg

DRUGS (4)
  1. HUMIRA [Suspect]
     Indication: PSORIASIS
     Route: 058
  2. UNKNOWN BLOOD PRESSURE MEDICATION [Concomitant]
     Indication: BLOOD PRESSURE
  3. UNKNOWN DEPRESSION MEDICATION [Concomitant]
     Indication: DEPRESSION
  4. UNKNOWN THYROID MEDICATION [Concomitant]
     Indication: HYPOTHYROIDISM

REACTIONS (5)
  - Loss of consciousness [Recovered/Resolved]
  - Dehydration [Unknown]
  - Glucose tolerance impaired [Not Recovered/Not Resolved]
  - Laceration [Recovered/Resolved]
  - Psoriasis [Not Recovered/Not Resolved]
